FAERS Safety Report 12906008 (Version 10)
Quarter: 2017Q2

REPORT INFORMATION
  Report Type: Report from Study
  Country: DK (occurrence: DK)
  Receive Date: 20161103
  Receipt Date: 20170619
  Transmission Date: 20170830
  Serious: Yes (Hospitalization)
  Sender: FDA-Public Use
  Company Number: DK-ROCHE-1848949

PATIENT
  Age: 66 Year
  Sex: Male
  Weight: 84.5 kg

DRUGS (20)
  1. DOMPERIDON [Concomitant]
     Active Substance: DOMPERIDONE
     Indication: NAUSEA
     Route: 048
     Dates: start: 20160502, end: 20161109
  2. PARACETAMOL [Concomitant]
     Active Substance: ACETAMINOPHEN
     Indication: TENSION HEADACHE
     Route: 048
  3. METHYLPREDNISOLON [Concomitant]
     Active Substance: METHYLPREDNISOLONE
     Route: 042
     Dates: start: 20150901
  4. VALDOXAN [Concomitant]
     Active Substance: AGOMELATINE
     Route: 048
     Dates: start: 20150915
  5. TADALAFIL [Concomitant]
     Active Substance: TADALAFIL
     Indication: ERECTILE DYSFUNCTION
     Route: 048
     Dates: start: 20160329, end: 20161109
  6. ONDANSETRON [Concomitant]
     Active Substance: ONDANSETRON
     Route: 048
     Dates: start: 20150901
  7. ACETYLSALICYLSYRE [Concomitant]
     Active Substance: ASPIRIN
     Indication: HEADACHE
     Dosage: 1 TABLET
     Route: 048
  8. SILDENAFIL. [Concomitant]
     Active Substance: SILDENAFIL
     Indication: ERECTILE DYSFUNCTION
     Route: 048
     Dates: start: 20161109
  9. TAVEGYL [Concomitant]
     Active Substance: CLEMASTINE FUMARATE
     Route: 048
     Dates: start: 20150901
  10. VALACICLOVIR [Concomitant]
     Active Substance: VALACYCLOVIR HYDROCHLORIDE
     Indication: HERPES VIRUS INFECTION
     Route: 048
     Dates: start: 20160208, end: 20161109
  11. PSYLLIUM HUSK [Concomitant]
     Active Substance: PSYLLIUM HUSK
     Indication: CONSTIPATION
     Dosage: 1 TBSP
     Route: 048
  12. QUETIAPIN [Concomitant]
     Active Substance: QUETIAPINE
     Route: 048
     Dates: start: 20150915
  13. MOMETASON [Concomitant]
     Active Substance: MOMETASONE FUROATE
     Indication: PENILE ULCERATION
     Dosage: 2 OTHER
     Route: 061
     Dates: start: 20160502, end: 20161109
  14. VENETOCLAX [Suspect]
     Active Substance: VENETOCLAX
     Indication: CHRONIC LYMPHOCYTIC LEUKAEMIA
     Dosage: THE MOST RECENT DOSE OF VENETOCLAX, 400 MG, WAS ADMINISTERED ON 22/MAR/2016.
     Route: 048
     Dates: start: 20150922
  15. OBINUTUZUMAB [Suspect]
     Active Substance: OBINUTUZUMAB
     Indication: CHRONIC LYMPHOCYTIC LEUKAEMIA
     Dosage: THE MOST RECENT DOSE OF OBINUTUZUMAB, 1000 MG, WAS ADMINISTERED ON 02/FEB/2016, AT 10: 20.
     Route: 042
     Dates: start: 20150901
  16. METOPROLOL. [Concomitant]
     Active Substance: METOPROLOL
     Dosage: 50 TABLET
     Route: 048
  17. QUETIAPIN [Concomitant]
     Active Substance: QUETIAPINE
     Route: 048
     Dates: start: 20150915, end: 20161109
  18. METFORMIN [Concomitant]
     Active Substance: METFORMIN HYDROCHLORIDE
     Indication: DIABETES MELLITUS
     Route: 048
     Dates: start: 20151002, end: 20161109
  19. CEFUROXIM [Concomitant]
     Active Substance: CEFUROXIME
     Indication: PENILE CANCER
     Route: 042
     Dates: start: 20161110, end: 20161115
  20. CAFFEINE. [Concomitant]
     Active Substance: CAFFEINE
     Indication: HEADACHE

REACTIONS (1)
  - Penile cancer [Recovered/Resolved]

NARRATIVE: CASE EVENT DATE: 20161011
